FAERS Safety Report 6806557-5 (Version None)
Quarter: 2010Q2

REPORT INFORMATION
  Report Type: 
  Country: None (occurrence: None)
  Receive Date: 20100629
  Receipt Date: 20080407
  Transmission Date: 20101027
  Serious: Yes (Hospitalization, Other)
  Sender: FDA-Public Use
  Company Number: US-PFIZER INC-2008014689

PATIENT
  Sex: Female
  Weight: 78.636 kg

DRUGS (9)
  1. TIKOSYN [Suspect]
     Indication: ATRIAL FIBRILLATION
     Dates: end: 20060301
  2. TIKOSYN [Suspect]
     Dates: start: 20060501
  3. LIPITOR [Suspect]
     Indication: BLOOD CHOLESTEROL INCREASED
     Dates: start: 20061101, end: 20080101
  4. AMIODARONE [Concomitant]
     Indication: ATRIAL FIBRILLATION
     Dates: start: 20060301, end: 20060501
  5. ASPIRINE [Concomitant]
  6. IMDUR [Concomitant]
  7. WARFARIN [Concomitant]
  8. LOPRESSOR [Concomitant]
  9. DIGOXIN [Concomitant]

REACTIONS (2)
  - DRUG INEFFECTIVE [None]
  - MUSCLE DISORDER [None]
